FAERS Safety Report 8271729-2 (Version None)
Quarter: 2012Q2

REPORT INFORMATION
  Report Type: 
  Country: None (occurrence: None)
  Receive Date: 20120410
  Receipt Date: 20120405
  Transmission Date: 20120825
  Serious: Yes (Hospitalization, Disabling)
  Sender: FDA-Public Use
  Company Number: US-MERCK-1111USA03248

PATIENT
  Age: 59 Year
  Sex: Female
  Weight: 82 kg

DRUGS (5)
  1. ALENDRONATE SODIUM [Suspect]
     Route: 048
     Dates: start: 20080402, end: 20080801
  2. ALENDRONATE SODIUM [Suspect]
     Route: 048
     Dates: start: 20091101
  3. FOSAMAX [Suspect]
     Indication: OSTEOPOROSIS
     Route: 048
     Dates: start: 20030101, end: 20100401
  4. FOSAMAX [Suspect]
     Indication: OSTEOPENIA
     Route: 048
     Dates: start: 20030101, end: 20100401
  5. ALENDRONATE SODIUM [Suspect]
     Route: 048
     Dates: start: 20081030, end: 20090701

REACTIONS (31)
  - OEDEMA [None]
  - RHEUMATOID ARTHRITIS [None]
  - BACK PAIN [None]
  - GASTROOESOPHAGEAL REFLUX DISEASE [None]
  - ROTATOR CUFF SYNDROME [None]
  - LIGAMENT RUPTURE [None]
  - HYPOTHYROIDISM [None]
  - CUSHING'S SYNDROME [None]
  - TRANSAMINASES INCREASED [None]
  - SLEEP APNOEA SYNDROME [None]
  - CYST [None]
  - POLYARTHRITIS [None]
  - TRIGGER FINGER [None]
  - TENOSYNOVITIS [None]
  - SCIATICA [None]
  - FEMUR FRACTURE [None]
  - HYPERLIPIDAEMIA [None]
  - FALL [None]
  - HYPOKALAEMIA [None]
  - UPPER-AIRWAY COUGH SYNDROME [None]
  - OSTEOARTHRITIS [None]
  - ANAEMIA [None]
  - HYPERCAPNIA [None]
  - HYPERCHOLESTEROLAEMIA [None]
  - INTERVERTEBRAL DISC DEGENERATION [None]
  - HYPERTENSION [None]
  - PAIN IN EXTREMITY [None]
  - PATELLOFEMORAL PAIN SYNDROME [None]
  - ARTHRALGIA [None]
  - FOOT FRACTURE [None]
  - BURSITIS [None]
